FAERS Safety Report 14411940 (Version 3)
Quarter: 2018Q2

REPORT INFORMATION
  Report Type: Report from Study
  Country: GB (occurrence: GB)
  Receive Date: 20180119
  Receipt Date: 20180625
  Transmission Date: 20180711
  Serious: Yes (Hospitalization)
  Sender: FDA-Public Use
  Company Number: GB-ASPEN-GLO2017GB009199

PATIENT
  Age: 64 Year
  Sex: Female
  Weight: 85 kg

DRUGS (37)
  1. BORTEZOMIB [Suspect]
     Active Substance: BORTEZOMIB
     Indication: PLASMA CELL MYELOMA
     Dosage: 1.3 MG/M2, ON DAYS 1, 4, 8 AND 11 OF 21 DAYS CYCLE
     Route: 058
  2. CALCEOS [Concomitant]
     Active Substance: CALCIUM CARBONATE\CHOLECALCIFEROL
     Indication: OSTEOLYSIS
     Dosage: 500 MG, QD
     Route: 048
     Dates: start: 201209
  3. ORAMORPH [Concomitant]
     Active Substance: MORPHINE SULFATE
     Indication: PAIN IN EXTREMITY
     Dosage: 500 MG, QD
     Route: 048
     Dates: start: 20170324
  4. RANITIDINE. [Concomitant]
     Active Substance: RANITIDINE
     Indication: GASTROOESOPHAGEAL REFLUX PROPHYLAXIS
     Dosage: 150 MG, QD
     Route: 048
     Dates: start: 20170131
  5. METOCLOPRAMIDE. [Concomitant]
     Active Substance: METOCLOPRAMIDE
     Indication: PROPHYLAXIS OF NAUSEA AND VOMITING
     Dosage: 10 MG
     Route: 048
     Dates: start: 20170131, end: 20170626
  6. DEXAMETHASONE. [Suspect]
     Active Substance: DEXAMETHASONE
     Indication: PLASMA CELL MYELOMA
     Dosage: 20 MG, ON DAYS 1, 2, 4, 5, 8, 9, 11 AND 12 OF 21 DAYS CYCLE.
     Route: 048
  7. LOPERAMIDE [Concomitant]
     Active Substance: LOPERAMIDE
     Indication: ANTIDIARRHOEAL SUPPORTIVE CARE
     Dosage: 2 MG
     Route: 048
     Dates: start: 20170131, end: 20170626
  8. CETIRIZINE [Concomitant]
     Active Substance: CETIRIZINE HYDROCHLORIDE
     Indication: PROPHYLAXIS OF NAUSEA AND VOMITING
     Dosage: 1 UNK, QD. ON DAY 1, 4, 8 AND 11.
     Route: 048
     Dates: start: 20170210
  9. RAMIPRIL. [Concomitant]
     Active Substance: RAMIPRIL
     Indication: HYPERTENSION
     Dosage: 0.15 MG, QD
     Route: 048
     Dates: start: 2015, end: 20170313
  10. ALLOPURINOL. [Concomitant]
     Active Substance: ALLOPURINOL
     Indication: PROPHYLAXIS
     Dosage: 300 MG, QD
     Route: 048
     Dates: start: 20170131
  11. PARACETAMOL [Concomitant]
     Active Substance: ACETAMINOPHEN
     Indication: BACK PAIN
     Dosage: 500 MG, QD
     Route: 048
     Dates: start: 20170324
  12. RAMIPRIL. [Concomitant]
     Active Substance: RAMIPRIL
     Indication: HYPOTHYROIDISM
     Dosage: 0.15 MG, QD
     Route: 048
     Dates: start: 2015, end: 20170313
  13. PARACETAMOL [Concomitant]
     Active Substance: ACETAMINOPHEN
     Dosage: 1 G
     Route: 048
     Dates: start: 20170530, end: 20170531
  14. NOVORAPID [Concomitant]
     Active Substance: INSULIN ASPART
     Dosage: 1 UNK
     Route: 058
     Dates: start: 20170604
  15. CETIRIZINE [Concomitant]
     Active Substance: CETIRIZINE HYDROCHLORIDE
     Indication: INJECTION SITE REACTION
     Dosage: 1 UNK, QD. ON DAY 1, 4, 8 AND 11.
     Route: 048
     Dates: start: 20170210
  16. VENETOCLAX. [Suspect]
     Active Substance: VENETOCLAX
     Indication: PLASMA CELL MYELOMA
     Dosage: 1 UNK, QD
     Route: 048
     Dates: start: 20170613, end: 20170620
  17. HYDROCORTISONE. [Concomitant]
     Active Substance: HYDROCORTISONE
     Indication: INJECTION SITE REACTION
     Dosage: 1 UNK, QD. ON DAY 1, 4, 8 AND 11 OF EVERY CYCLE, 1 APPLICATOR FULL.
     Route: 061
     Dates: start: 20170210
  18. NOVORAPID [Concomitant]
     Active Substance: INSULIN ASPART
     Dosage: 1 UNK, QD
     Route: 058
     Dates: start: 20170530, end: 20170603
  19. ACICLOVIR [Concomitant]
     Active Substance: ACYCLOVIR
     Indication: ANTIVIRAL PROPHYLAXIS
     Dosage: 400 MG, QD
     Route: 048
     Dates: start: 20170130
  20. VENETOCLAX. [Suspect]
     Active Substance: VENETOCLAX
     Dosage: 1 UNK, QD
     Route: 048
     Dates: start: 20170131, end: 20170612
  21. MIDODRINE [Concomitant]
     Active Substance: MIDODRINE
     Dosage: 2.5 MG, QD
     Route: 048
     Dates: start: 20170313, end: 20170320
  22. PARACETAMOL [Concomitant]
     Active Substance: ACETAMINOPHEN
     Indication: PAIN IN EXTREMITY
     Dosage: 500 MG, QD
     Route: 048
     Dates: start: 20170324
  23. RAMIPRIL. [Concomitant]
     Active Substance: RAMIPRIL
     Dosage: 1.25 MG, QD
     Route: 048
     Dates: start: 20170320
  24. MIDODRINE [Concomitant]
     Active Substance: MIDODRINE
     Indication: HYPOTENSION
     Dosage: 2.5 MG, QD
     Route: 048
     Dates: start: 20170320
  25. PARACETAMOL [Concomitant]
     Active Substance: ACETAMINOPHEN
     Indication: LOWER RESPIRATORY TRACT INFECTION
     Dosage: 1 G
     Route: 048
     Dates: start: 20170530, end: 20170531
  26. NOVORAPID [Concomitant]
     Active Substance: INSULIN ASPART
     Indication: DIABETES MELLITUS
     Dosage: 1 00 UNIT/ML, QD
     Route: 058
     Dates: start: 20170601, end: 20170601
  27. CODEINE [Concomitant]
     Active Substance: CODEINE
     Indication: BACK PAIN
     Dosage: 30-60MG
     Route: 048
     Dates: start: 20170603
  28. LEVOTHYROXINE. [Concomitant]
     Active Substance: LEVOTHYROXINE
     Indication: HYPOTHYROIDISM
     Dosage: 150 MCG, QD
     Route: 048
     Dates: start: 20120904
  29. HUMULIN L [Concomitant]
     Active Substance: INSULIN HUMAN
     Indication: DIABETES MELLITUS
     Dosage: 1 UNK, QD
     Route: 058
     Dates: start: 20170601
  30. HUMULIN L [Concomitant]
     Active Substance: INSULIN HUMAN
     Dosage: 1 UNK, QD
     Route: 058
     Dates: start: 20170601
  31. ZOMETA [Concomitant]
     Active Substance: ZOLEDRONIC ACID
     Indication: OSTEOLYSIS
     Dosage: 4 MG
     Route: 042
     Dates: start: 20140102
  32. RAMIPRIL. [Concomitant]
     Active Substance: RAMIPRIL
     Dosage: 1.25 MG, QD
     Route: 048
     Dates: start: 2015, end: 20170313
  33. RAMIPRIL. [Concomitant]
     Active Substance: RAMIPRIL
     Dosage: 1.25 MG, QD
     Route: 048
     Dates: start: 2015, end: 20170313
  34. PARACETAMOL [Concomitant]
     Active Substance: ACETAMINOPHEN
     Dosage: 500 MG, QD
     Route: 048
     Dates: start: 20170324
  35. PARACETAMOL [Concomitant]
     Active Substance: ACETAMINOPHEN
     Dosage: 1 G
     Route: 048
     Dates: start: 20170530, end: 20170531
  36. ATORVASTATIN [Concomitant]
     Active Substance: ATORVASTATIN
     Indication: PROPHYLAXIS
     Dosage: 20 MG, QD
     Route: 048
     Dates: start: 2015
  37. ORAMORPH [Concomitant]
     Active Substance: MORPHINE SULFATE
     Indication: BACK PAIN
     Dosage: 500 MG, QD
     Route: 048
     Dates: start: 20170324

REACTIONS (3)
  - Confusional state [Not Recovered/Not Resolved]
  - Hallucination [Unknown]
  - Speech disorder [Unknown]

NARRATIVE: CASE EVENT DATE: 201705
